FAERS Safety Report 8424119-3 (Version None)
Quarter: 2012Q2

REPORT INFORMATION
  Report Type: 
  Country: None (occurrence: None)
  Receive Date: 20120608
  Receipt Date: 20110919
  Transmission Date: 20120825
  Serious: No
  Sender: FDA-Public Use
  Company Number: US-ASTRAZENECA-2011SE28979

PATIENT
  Age: 64 Year
  Sex: Female

DRUGS (2)
  1. PULMICORT FLEXHALER [Suspect]
     Route: 055
  2. NEXIUM [Suspect]
     Dosage: TWO TIMES A DAY
     Route: 048

REACTIONS (5)
  - DYSPEPSIA [None]
  - OESOPHAGEAL DISORDER [None]
  - GASTRIC DISORDER [None]
  - GASTROOESOPHAGEAL REFLUX DISEASE [None]
  - INAPPROPRIATE SCHEDULE OF DRUG ADMINISTRATION [None]
